FAERS Safety Report 20685611 (Version 1)
Quarter: 2022Q2

REPORT INFORMATION
  Report Type: Spontaneous
  Country: US (occurrence: None)
  Receive Date: 20220406
  Receipt Date: 20220406
  Transmission Date: 20220720
  Serious: Yes (Other)
  Sender: FDA-Public Use
  Company Number: None

PATIENT
  Age: 56 Year
  Sex: Male

DRUGS (2)
  1. OMADACYCLINE [Suspect]
     Active Substance: OMADACYCLINE
     Indication: Tooth abscess
     Dosage: FREQUENCY : DAILY;?
     Route: 048
     Dates: start: 20220310, end: 20220404
  2. OMADACYCLINE [Suspect]
     Active Substance: OMADACYCLINE
     Indication: Osteomyelitis

REACTIONS (1)
  - Melaena [None]

NARRATIVE: CASE EVENT DATE: 20220404
